FAERS Safety Report 19137972 (Version 1)
Quarter: 2021Q2

REPORT INFORMATION
  Report Type: Spontaneous
  Country: US (occurrence: US)
  Receive Date: 20210415
  Receipt Date: 20210415
  Transmission Date: 20210717
  Serious: No
  Sender: FDA-Public Use
  Company Number: US-ORGANON-O2103USA003012

PATIENT
  Age: 72 Year
  Sex: Female

DRUGS (1)
  1. ZETIA [Suspect]
     Active Substance: EZETIMIBE
     Indication: BLOOD CHOLESTEROL ABNORMAL
     Dosage: 10 MILLIGRAM, ONCE DAILY
     Route: 048
     Dates: start: 20201221, end: 20210321

REACTIONS (3)
  - Lip swelling [Recovered/Resolved]
  - Oral discomfort [Recovered/Resolved]
  - Lip exfoliation [Recovered/Resolved]

NARRATIVE: CASE EVENT DATE: 202012
